FAERS Safety Report 5358642-5 (Version None)
Quarter: 2007Q2

REPORT INFORMATION
  Report Type: 
  Country: None (occurrence: None)
  Receive Date: 20070615
  Receipt Date: 20070604
  Transmission Date: 20071010
  Serious: Yes (Other)
  Sender: FDA-Public Use
  Company Number: US-SOLVAY-00207032327

PATIENT
  Age: 48 Year
  Sex: Male
  Weight: 82.5 kg

DRUGS (4)
  1. TENORETIC 100 [Concomitant]
     Indication: HYPERTENSION
     Dosage: DAILY DOSE:  UNKNOWN
     Route: 048
  2. ANDROGEL [Suspect]
     Indication: ILL-DEFINED DISORDER
     Dosage: DAILY DOSE:  UNKNOWN
     Route: 062
  3. TESTIM [Suspect]
     Indication: HYPOGONADISM
     Dosage: DAILY DOSE:  UNKNOWN
     Route: 062
     Dates: start: 20070301, end: 20070501
  4. ANDRODERM [Suspect]
     Indication: ILL-DEFINED DISORDER
     Dosage: DAILY DOSE:  UNKNOWN
     Route: 062

REACTIONS (1)
  - HYPERSENSITIVITY [None]
